FAERS Safety Report 12780576 (Version 2)
Quarter: 2016Q4

REPORT INFORMATION
  Report Type: Report from Study
  Country: AU (occurrence: AU)
  Receive Date: 20160926
  Receipt Date: 20161018
  Transmission Date: 20170207
  Serious: Yes (Death)
  Sender: FDA-Public Use
  Company Number: AU-PFIZER INC-2016432482

PATIENT
  Age: 28 Year

DRUGS (1)
  1. VINCRISTINE SULFATE. [Suspect]
     Active Substance: VINCRISTINE SULFATE
     Indication: BURKITT^S LYMPHOMA
     Dosage: 2.0 MG, UNK
     Route: 037

REACTIONS (2)
  - Incorrect route of drug administration [Fatal]
  - Wrong drug administered [Fatal]
